FAERS Safety Report 10169129 (Version 1)
Quarter: 2014Q2

REPORT INFORMATION
  Report Type: Spontaneous
  Country: US (occurrence: US)
  Receive Date: 20140513
  Receipt Date: 20140513
  Transmission Date: 20141212
  Serious: No
  Sender: FDA-Public Use
  Company Number: US-TARO-2013P1007816

PATIENT
  Age: 3 Year
  Sex: Female
  Weight: 12.93 kg

DRUGS (1)
  1. CETIRIZINE HCL CHILDREN ORAL SOLUTION ALLERGY 1MG/ML (SUGARFREE GRAPE) [Suspect]
     Route: 048
     Dates: start: 20130606, end: 20130606

REACTIONS (1)
  - Rash [Recovering/Resolving]
